FAERS Safety Report 11239045 (Version 1)
Quarter: 2015Q3

REPORT INFORMATION
  Report Type: Spontaneous
  Country: US (occurrence: None)
  Receive Date: 20150701
  Receipt Date: 20150701
  Transmission Date: 20151125
  Serious: Yes (Disabling)
  Sender: FDA-Public Use
  Company Number: None

PATIENT

DRUGS (1)
  1. ZZZQUIL NIGHTTIME SLEEP-AID [Suspect]
     Active Substance: DIPHENHYDRAMINE HYDROCHLORIDE
     Indication: INSOMNIA
     Dosage: 2 CAPSULES, BEDTIME, BY MOUTH
     Route: 048
     Dates: start: 20120726, end: 20120729

REACTIONS (12)
  - Dyscalculia [None]
  - Somnolence [None]
  - Feeling abnormal [None]
  - Confusional state [None]
  - Fall [None]
  - Hypoaesthesia [None]
  - Fatigue [None]
  - Memory impairment [None]
  - Dysarthria [None]
  - Head injury [None]
  - Contusion [None]
  - Somnambulism [None]

NARRATIVE: CASE EVENT DATE: 20120730
